FAERS Safety Report 8193350-7 (Version None)
Quarter: 2012Q1

REPORT INFORMATION
  Report Type: 
  Country: None (occurrence: None)
  Receive Date: 20120308
  Receipt Date: 20120226
  Transmission Date: 20120608
  Serious: Yes (Hospitalization, Other)
  Sender: FDA-Public Use
  Company Number: DE-JNJFOC-20120302659

PATIENT
  Age: 49 Year
  Sex: Female

DRUGS (4)
  1. DESOGESTREL AND ETHINYL ESTRADIOL [Suspect]
     Indication: ORAL CONTRACEPTION
     Route: 048
     Dates: end: 20111201
  2. XARELTO [Suspect]
     Indication: PRODUCT USED FOR UNKNOWN INDICATION
     Route: 048
     Dates: start: 20111201
  3. XARELTO [Suspect]
     Route: 048
     Dates: start: 20111201
  4. DESOGESTREL AND ETHINYL ESTRADIOL [Suspect]
     Indication: MENORRHAGIA
     Route: 048
     Dates: end: 20111201

REACTIONS (2)
  - MENORRHAGIA [None]
  - DEEP VEIN THROMBOSIS [None]
